FAERS Safety Report 15452635 (Version 1)
Quarter: 2018Q4

REPORT INFORMATION
  Report Type: Report from Study
  Country: US (occurrence: US)
  Receive Date: 20181001
  Receipt Date: 20181001
  Transmission Date: 20190204
  Serious: Yes (Other)
  Sender: FDA-Public Use
  Company Number: US-JAZZ-2018-US-012079

PATIENT
  Age: 50 Year
  Sex: Female

DRUGS (28)
  1. GABAPENTIN. [Concomitant]
     Active Substance: GABAPENTIN
  2. GLYCINE. [Concomitant]
     Active Substance: GLYCINE
  3. IRON PROTEINSUCCINYLATE [Concomitant]
  4. ASHWAGANDHA [Concomitant]
     Active Substance: HERBALS
  5. VINPOCETINE [Concomitant]
     Active Substance: VINPOCETINE
  6. NAPROXEN. [Concomitant]
     Active Substance: NAPROXEN
  7. TOPIRAMATE. [Concomitant]
     Active Substance: TOPIRAMATE
  8. VITAMIN K [Concomitant]
     Active Substance: PHYTONADIONE
  9. L-HISTIDINE [Concomitant]
  10. LEXAPRO [Concomitant]
     Active Substance: ESCITALOPRAM OXALATE
  11. MAGNESIUM GLUCONATE [Concomitant]
     Active Substance: MAGNESIUM GLUCONATE
  12. OMEGA 3 [Concomitant]
     Active Substance: OMEGA-3 FATTY ACIDS
  13. PROZAC [Concomitant]
     Active Substance: FLUOXETINE HYDROCHLORIDE
  14. SIMVASTATIN. [Concomitant]
     Active Substance: SIMVASTATIN
  15. VITAMIN D3 [Concomitant]
     Active Substance: CHOLECALCIFEROL
  16. XYREM [Suspect]
     Active Substance: SODIUM OXYBATE
     Indication: NARCOLEPSY
     Dosage: 2.25 G, BID
     Route: 048
     Dates: start: 20180804, end: 2018
  17. XYREM [Suspect]
     Active Substance: SODIUM OXYBATE
     Dosage: 2.5 G, BID
     Route: 048
     Dates: start: 2018, end: 2018
  18. AMBIEN [Concomitant]
     Active Substance: ZOLPIDEM TARTRATE
  19. CARNITINE [Concomitant]
     Active Substance: CARNITINE
  20. COENZYME Q10 [Concomitant]
     Active Substance: UBIDECARENONE
  21. DHEA [Concomitant]
     Active Substance: PRASTERONE
  22. MELATONIN [Concomitant]
     Active Substance: MELATONIN
  23. PHENYLALANINE [Concomitant]
     Active Substance: PHENYLALANINE
  24. ASPIRIN 81 [Concomitant]
     Active Substance: ASPIRIN
  25. XYREM [Suspect]
     Active Substance: SODIUM OXYBATE
     Dosage: 3 G, BID
     Route: 048
     Dates: start: 201808, end: 2018
  26. ADDERALL [Concomitant]
     Active Substance: AMPHETAMINE ASPARTATE\AMPHETAMINE SULFATE\DEXTROAMPHETAMINE SACCHARATE\DEXTROAMPHETAMINE SULFATE
  27. CURCUMIN [Concomitant]
     Active Substance: CURCUMIN
  28. REQUIP [Concomitant]
     Active Substance: ROPINIROLE HYDROCHLORIDE

REACTIONS (13)
  - Urine odour abnormal [Not Recovered/Not Resolved]
  - Disturbance in attention [Not Recovered/Not Resolved]
  - Sudden onset of sleep [Unknown]
  - Fatigue [Unknown]
  - Intentional product use issue [Unknown]
  - Urine abnormality [Not Recovered/Not Resolved]
  - Depressed mood [Unknown]
  - Feeling cold [Not Recovered/Not Resolved]
  - Chromaturia [Not Recovered/Not Resolved]
  - Nausea [Unknown]
  - Dizziness [Not Recovered/Not Resolved]
  - Dysuria [Unknown]
  - Abdominal pain upper [Not Recovered/Not Resolved]

NARRATIVE: CASE EVENT DATE: 201808
